FAERS Safety Report 21176669 (Version 1)
Quarter: 2022Q3

REPORT INFORMATION
  Report Type: Spontaneous
  Country: US (occurrence: US)
  Receive Date: 20220805
  Receipt Date: 20220805
  Transmission Date: 20221027
  Serious: No
  Sender: FDA-Public Use
  Company Number: US-PFIZER INC-202201029975

PATIENT
  Age: 71 Year
  Sex: Male

DRUGS (1)
  1. PAXLOVID [Suspect]
     Active Substance: NIRMATRELVIR\RITONAVIR
     Indication: COVID-19 treatment
     Dosage: UNK
     Dates: start: 20220715, end: 20220720

REACTIONS (6)
  - COVID-19 [Recovered/Resolved]
  - Disease recurrence [Recovered/Resolved]
  - Malaise [Recovered/Resolved]
  - Nasal congestion [Recovered/Resolved]
  - Chills [Recovered/Resolved]
  - Ear discomfort [Recovered/Resolved]

NARRATIVE: CASE EVENT DATE: 20220721
